FAERS Safety Report 6232493-1 (Version None)
Quarter: 2009Q2

REPORT INFORMATION
  Report Type: 
  Country: None (occurrence: None)
  Receive Date: 20090612
  Receipt Date: 20090603
  Transmission Date: 20091009
  Serious: Yes (Hospitalization)
  Sender: FDA-Public Use
  Company Number: 2008-04724

PATIENT
  Age: 85 Year
  Sex: Male
  Weight: 89 kg

DRUGS (3)
  1. VELCADE [Suspect]
     Indication: MULTIPLE MYELOMA
     Dosage: 1 MG/M2, INTRAVENOUS
     Dates: start: 20081118, end: 20081212
  2. ALKERAN [Suspect]
     Indication: MULTIPLE MYELOMA
     Dosage: 18 MG, ORAL
     Route: 048
     Dates: start: 20081118, end: 20081122
  3. PREDNISONE [Suspect]
     Indication: MULTIPLE MYELOMA
     Dosage: 120 MG, ORAL
     Route: 048
     Dates: start: 20081118, end: 20081122

REACTIONS (11)
  - ABDOMINAL PAIN [None]
  - ANAEMIA [None]
  - ATELECTASIS [None]
  - BARRETT'S OESOPHAGUS [None]
  - DEHYDRATION [None]
  - DYSPNOEA [None]
  - GASTRITIS EROSIVE [None]
  - PLEURAL EFFUSION [None]
  - PYREXIA [None]
  - RENAL FAILURE ACUTE [None]
  - THROMBOCYTOPENIA [None]
